FAERS Safety Report 8174642-4 (Version None)
Quarter: 2012Q1

REPORT INFORMATION
  Report Type: 
  Country: None (occurrence: None)
  Receive Date: 20120229
  Receipt Date: 20120222
  Transmission Date: 20120608
  Serious: Yes (Life-Threatening, Hospitalization)
  Sender: FDA-Public Use
  Company Number: KW-JNJFOC-20120212208

PATIENT
  Sex: Male

DRUGS (2)
  1. IMURAN [Concomitant]
     Indication: COLITIS ULCERATIVE
  2. REMICADE [Suspect]
     Indication: COLITIS ULCERATIVE
     Dosage: PT TREATED FOR 5 YEARS WITH INFLIXIMAB
     Route: 042

REACTIONS (1)
  - HODGKIN'S DISEASE [None]
